FAERS Safety Report 4849433-X (Version None)
Quarter: 2005Q4

REPORT INFORMATION
  Report Type: 
  Country: None (occurrence: None)
  Receive Date: 20051207
  Receipt Date: 20051128
  Transmission Date: 20060501
  Serious: Yes (Hospitalization)
  Sender: FDA-Public Use
  Company Number: 2005BI019482

PATIENT
  Age: 53 Year
  Sex: Female

DRUGS (7)
  1. AVONEX [Suspect]
     Indication: MULTIPLE SCLEROSIS
     Dosage: 30 UG;QW;IM
     Route: 030
     Dates: start: 19990621
  2. AVONEX [Suspect]
     Indication: MULTIPLE SCLEROSIS
     Dosage: 30 UG;QW;IM
     Route: 030
  3. AMANTADINE HCL [Concomitant]
  4. MULTI-VITAMIN [Concomitant]
  5. VITAMIN B COMPLEX CAP [Concomitant]
  6. VITAMIN E [Concomitant]
  7. CALCIUM WITH VITAMIN D [Concomitant]

REACTIONS (4)
  - CONGENITAL CYSTIC KIDNEY DISEASE [None]
  - COORDINATION ABNORMAL [None]
  - INTERVERTEBRAL DISC PROTRUSION [None]
  - NEPHROLITHIASIS [None]
